FAERS Safety Report 10277529 (Version 2)
Quarter: 2014Q3

REPORT INFORMATION
  Report Type: Spontaneous
  Country: US (occurrence: US)
  Receive Date: 20140703
  Receipt Date: 20140703
  Transmission Date: 20150326
  Serious: Yes (Other)
  Sender: FDA-Public Use
  Company Number: US-RECKITT BENCKISER PHARMACEUTICAL, INC-RB-66163-2014

PATIENT
  Age: 70 Year
  Sex: Female

DRUGS (1)
  1. SUBOXONE [Suspect]
     Active Substance: BUPRENORPHINE HYDROCHLORIDE\NALOXONE HYDROCHLORIDE
     Indication: DRUG DEPENDENCE
     Dosage: SUBOXONE FILM: DOSING DETAILS UNKNOWN; SELF TAPERING
     Route: 065

REACTIONS (12)
  - Insomnia [Unknown]
  - Intentional underdose [Not Recovered/Not Resolved]
  - Vomiting [Unknown]
  - Restless legs syndrome [Unknown]
  - Decreased appetite [Unknown]
  - Fear [Not Recovered/Not Resolved]
  - Substance abuse [Not Recovered/Not Resolved]
  - Pain in extremity [Unknown]
  - Suicidal ideation [Unknown]
  - Drug dependence [Not Recovered/Not Resolved]
  - Diarrhoea [Not Recovered/Not Resolved]
  - Malaise [Unknown]
